FAERS Safety Report 5317085-0 (Version None)
Quarter: 2007Q2

REPORT INFORMATION
  Report Type: 
  Country: None (occurrence: None)
  Receive Date: 20070504
  Receipt Date: 20070420
  Transmission Date: 20071010
  Serious: Yes (Other)
  Sender: FDA-Public Use
  Company Number: JP-ROCHE-490343

PATIENT
  Age: 5 Year
  Sex: Female
  Weight: 18 kg

DRUGS (6)
  1. TAMIFLU [Suspect]
     Dosage: FORM: DRY SYRUP.
     Route: 048
     Dates: start: 20070224
  2. FLOMOX [Concomitant]
     Route: 048
     Dates: start: 20070223, end: 20070224
  3. ASVERIN [Concomitant]
     Route: 048
     Dates: start: 20070223, end: 20070304
  4. PERIACTIN [Concomitant]
     Dosage: FORM: FINE GRANULE.
     Route: 048
     Dates: start: 20070223, end: 20070304
  5. MEPTIN [Concomitant]
     Route: 048
     Dates: start: 20070223, end: 20070304
  6. MUCOSAL [Concomitant]
     Route: 048
     Dates: start: 20070223, end: 20070304

REACTIONS (1)
  - ABNORMAL BEHAVIOUR [None]
